FAERS Safety Report 9552609 (Version 1)
Quarter: 2013Q2

REPORT INFORMATION
  Report Type: Spontaneous
  Country: US (occurrence: None)
  Receive Date: 20130417
  Receipt Date: 20130417
  Transmission Date: 20140414
  Serious: Yes (Other)
  Sender: FDA-Public Use
  Company Number: 2012P1038359

PATIENT
  Sex: 0

DRUGS (1)
  1. CAPTOPRIL [Suspect]

REACTIONS (1)
  - Coeliac disease [None]
